FAERS Safety Report 21216567 (Version 1)
Quarter: 2022Q3

REPORT INFORMATION
  Report Type: Spontaneous
  Country: US (occurrence: US)
  Receive Date: 20220816
  Receipt Date: 20220816
  Transmission Date: 20221026
  Serious: No
  Sender: FDA-Public Use
  Company Number: US-PAIPHARMA-2021-US-025797

PATIENT
  Age: 80 Year
  Sex: Female
  Weight: 113.4 kg

DRUGS (1)
  1. LACTULOSE [Suspect]
     Active Substance: LACTULOSE
     Indication: Hepatic cirrhosis
     Dosage: 30 MG PO TID
     Route: 048
     Dates: start: 2017

REACTIONS (3)
  - Vomiting [Not Recovered/Not Resolved]
  - Off label use [Unknown]
  - Product prescribing issue [Not Recovered/Not Resolved]

NARRATIVE: CASE EVENT DATE: 20170101
